FAERS Safety Report 6228628-7 (Version None)
Quarter: 2009Q2

REPORT INFORMATION
  Report Type: 
  Country: None (occurrence: None)
  Receive Date: 20090612
  Receipt Date: 20090608
  Transmission Date: 20091009
  Serious: Yes (Disabling)
  Sender: FDA-Public Use
  Company Number: GB-MERCK-0906GBR00044

PATIENT
  Age: 74 Year
  Sex: Male
  Weight: 112 kg

DRUGS (10)
  1. ZOCOR [Suspect]
     Indication: HYPERLIPIDAEMIA
     Route: 048
     Dates: start: 20090507, end: 20090510
  2. ASPIRIN [Concomitant]
     Route: 048
  3. BUTYLSCOPOLAMINE BROMIDE [Concomitant]
     Route: 065
  4. CIPROFLOXACIN [Concomitant]
     Route: 048
  5. ACETAMINOPHEN AND CODEINE PHOSPHATE [Concomitant]
     Indication: PAIN
     Route: 048
  6. GLICLAZIDE [Concomitant]
     Route: 048
  7. METFORMIN [Concomitant]
     Route: 048
  8. METFORMIN [Concomitant]
     Route: 048
  9. OMEPRAZOLE [Concomitant]
     Route: 048
  10. RAMIPRIL [Concomitant]
     Route: 048

REACTIONS (4)
  - ABDOMINAL PAIN [None]
  - APHASIA [None]
  - FAECAL INCONTINENCE [None]
  - MYALGIA [None]
